FAERS Safety Report 6649515-6 (Version None)
Quarter: 2010Q1

REPORT INFORMATION
  Report Type: 
  Country: None (occurrence: None)
  Receive Date: 20100324
  Receipt Date: 20100324
  Transmission Date: 20100710
  Serious: No
  Sender: FDA-Public Use
  Company Number: None

PATIENT
  Age: 66 Year
  Sex: Male
  Weight: 65.7716 kg

DRUGS (2)
  1. TRIESENCE [Suspect]
     Indication: RETINAL VEIN OCCLUSION
     Dosage: PER LABEL ? 1 TIME INTRAOCULAR
     Route: 031
  2. ASPIRIN -GENERIC- [Concomitant]

REACTIONS (3)
  - DRUG EFFECT DECREASED [None]
  - RETINAL OEDEMA [None]
  - VISUAL IMPAIRMENT [None]
